FAERS Safety Report 17075612 (Version 3)
Quarter: 2019Q4

REPORT INFORMATION
  Report Type: Spontaneous
  Country: NI (occurrence: NI)
  Receive Date: 20191126
  Receipt Date: 20191231
  Transmission Date: 20200122
  Serious: Yes (Hospitalization, Other)
  Sender: FDA-Public Use
  Company Number: NI-BRISTOL-MYERS SQUIBB COMPANY-BMS-2019-023978

PATIENT
  Sex: Male

DRUGS (1)
  1. SPRYCEL [Suspect]
     Active Substance: DASATINIB
     Indication: CHRONIC MYELOID LEUKAEMIA
     Dosage: 100 MILLIGRAM, 2 X 50 MG TABLETS
     Route: 065

REACTIONS (3)
  - Dengue fever [Recovering/Resolving]
  - White blood cell disorder [Unknown]
  - Platelet count decreased [Unknown]
